FAERS Safety Report 7965216-6 (Version None)
Quarter: 2011Q4

REPORT INFORMATION
  Report Type: 
  Country: None (occurrence: None)
  Receive Date: 20111208
  Receipt Date: 20111129
  Transmission Date: 20120403
  Serious: Yes (Other)
  Sender: FDA-Public Use
  Company Number: US-BAYER-2011-115132

PATIENT
  Age: 50 Year
  Sex: Male
  Weight: 79 kg

DRUGS (2)
  1. ALKA-SELTZER PLUS COLD SPARKLING ORIGINAL [Suspect]
     Indication: SLEEP DISORDER THERAPY
     Dosage: 2 DF, QD
     Route: 048
  2. TYLENOL [DIPHENHYDRAMINE HYDROCHLORIDE,PARACETAMOL] [Concomitant]
     Dosage: UNK UNK, PRN

REACTIONS (4)
  - HAEMATOSPERMIA [None]
  - EPISTAXIS [None]
  - HAEMORRHAGIC DIATHESIS [None]
  - COAGULOPATHY [None]
